FAERS Safety Report 4661148-X (Version None)
Quarter: 2005Q2

REPORT INFORMATION
  Report Type: 
  Country: None (occurrence: None)
  Receive Date: 20050511
  Receipt Date: 20050504
  Transmission Date: 20051028
  Serious: Yes (Death)
  Sender: FDA-Public Use
  Company Number: 2005-05-0187

PATIENT
  Sex: Female

DRUGS (3)
  1. SALBUTAMOL SULFATE ORAL AEROSOL LIKE PROVENTIL HFA [Suspect]
     Dosage: 2 PUFFS PRN ORAL AER INH
     Route: 055
  2. SERETIDE (SALMETEROL XINAFOATE/FLUTICASONE PROPIONAT ORAL AEROSOL [Suspect]
     Dosage: 2 PUFFS BID ORAL AER INH
     Route: 055
  3. TIOTROPIUM BROMIDE [Suspect]
     Dosage: 18 MCG QD ORAL AER INH
     Route: 055

REACTIONS (2)
  - BRONCHITIS ACUTE [None]
  - CHRONIC OBSTRUCTIVE AIRWAYS DISEASE EXACERBATED [None]
